FAERS Safety Report 7656530-2 (Version None)
Quarter: 2011Q3

REPORT INFORMATION
  Report Type: 
  Country: None (occurrence: None)
  Receive Date: 20110804
  Receipt Date: 20101101
  Transmission Date: 20111222
  Serious: No
  Sender: FDA-Public Use
  Company Number: US-BAUSCH-2010BL006164

PATIENT
  Age: 72 Year
  Sex: Female

DRUGS (3)
  1. OPCON-A [Suspect]
     Indication: SEASONAL ALLERGY
     Route: 047
     Dates: start: 20101001, end: 20101001
  2. NAPHAZOLINE HYDROCHLORIDE [Suspect]
     Indication: SEASONAL ALLERGY
     Route: 047
     Dates: start: 20101001, end: 20101001
  3. SYSTANE [Concomitant]
     Indication: DRY EYE
     Route: 047

REACTIONS (1)
  - DRY EYE [None]
